FAERS Safety Report 4638479-2 (Version None)
Quarter: 2005Q2

REPORT INFORMATION
  Report Type: 
  Country: None (occurrence: None)
  Receive Date: 20050418
  Receipt Date: 20050329
  Transmission Date: 20051028
  Serious: Yes (Hospitalization, Other)
  Sender: FDA-Public Use
  Company Number: CA_050307935

PATIENT
  Age: 73 Year
  Sex: Female

DRUGS (7)
  1. EVISTA [Suspect]
     Indication: OSTEOPOROSIS
     Dosage: 60 MG/1 DAY
     Dates: start: 19990101
  2. HYDROCHLOROTHIAZIDE [Concomitant]
  3. LOSEC (OMEPRAZOLE SODIUM) [Concomitant]
  4. MOBIC [Concomitant]
  5. PLAVIX [Concomitant]
  6. LORAZEPAM [Concomitant]
  7. VIOX (ROFECOXIB) [Concomitant]

REACTIONS (2)
  - AORTIC ATHEROSCLEROSIS [None]
  - CEREBROVASCULAR ACCIDENT [None]
